FAERS Safety Report 8982021 (Version 1)
Quarter: 2012Q4

REPORT INFORMATION
  Report Type: 
  Country: US (occurrence: US)
  Receive Date: 20121212
  Receipt Date: 20121212
  Transmission Date: 20130627
  Serious: Yes (Other)
  Sender: FDA-Public Use
  Company Number: US-ASTELLAS-1092684

PATIENT
  Sex: Male

DRUGS (2)
  1. TARCEVA [Suspect]
     Indication: PRODUCT USED FOR UNKNOWN INDICATION
     Route: 065
  2. AVASTIN [Suspect]
     Indication: RENAL CANCER
     Dosage: Last dose prior to SAE on 10/Mar/2005
     Route: 065
     Dates: end: 20050315

REACTIONS (2)
  - Rash [Unknown]
  - Metastases to lung [Unknown]
